FAERS Safety Report 8958722 (Version 3)
Quarter: 2021Q2

REPORT INFORMATION
  Report Type: Other
  Country: US (occurrence: US)
  Receive Date: 20121212
  Receipt Date: 20210615
  Transmission Date: 20210717
  Serious: Yes (Other)
  Sender: FDA-Public Use
  Company Number: US-ROCHE-635620

PATIENT

DRUGS (10)
  1. IFOSFAMIDE. [Suspect]
     Active Substance: IFOSFAMIDE
     Indication: MANTLE CELL LYMPHOMA
     Dosage: 1.5 G/M2 ON DAYS 1?5
     Route: 042
  2. CYCLOPHOSPHAMIDE. [Suspect]
     Active Substance: CYCLOPHOSPHAMIDE
     Indication: MANTLE CELL LYMPHOMA
     Dosage: 800 MG/M2 ON DAY 1 AND 200 MG/M2/DAY ON DAYS 2?5
     Route: 042
  3. DOXORUBICIN [Suspect]
     Active Substance: DOXORUBICIN
     Indication: MANTLE CELL LYMPHOMA
     Dosage: ON DAY 1
     Route: 042
  4. CYTARABINE. [Suspect]
     Active Substance: CYTARABINE
     Indication: MANTLE CELL LYMPHOMA
     Dosage: 2 G/M2 ON DAYS 1 AND 2
     Route: 042
  5. VINCRISTINE [Suspect]
     Active Substance: VINCRISTINE
     Indication: MANTLE CELL LYMPHOMA
     Dosage: 1.5 MG/M2 ON DAYS 1 AND 8 (CAPPED AT 2 MG)
     Route: 042
  6. METHOTREXATE. [Suspect]
     Active Substance: METHOTREXATE
     Indication: MANTLE CELL LYMPHOMA
     Dosage: 1.2 G/M2 ON DAY 10 OVER 1 HOUR IMMEDIATELY FOLLOWED BY 5.52 G/M2 OVER 23 HOUR
     Route: 042
  7. ETOPOSIDE. [Suspect]
     Active Substance: ETOPOSIDE
     Indication: MANTLE CELL LYMPHOMA
     Dosage: ON DAYS 1?5
     Route: 042
  8. FOLINIC ACID [Suspect]
     Active Substance: LEUCOVORIN
     Indication: MANTLE CELL LYMPHOMA
     Dosage: THE FIRST DOSE WAS 180 MG/M2 FOLLOWED BY 12 MG/M2 EVERY 6 H FOR AT LEAST 10 DOSES
     Route: 042
  9. RITUXIMAB. [Suspect]
     Active Substance: RITUXIMAB
     Indication: MANTLE CELL LYMPHOMA
     Dosage: RECEIVED ON DAY 1 OF CYCLE 1 AND 2
     Route: 042
  10. MESNA. [Suspect]
     Active Substance: MESNA
     Indication: MANTLE CELL LYMPHOMA
     Route: 042

REACTIONS (24)
  - Blood creatinine increased [Unknown]
  - Oedema [Unknown]
  - Mucosal inflammation [Unknown]
  - Anaemia [Unknown]
  - Constipation [Unknown]
  - Infectious pleural effusion [Unknown]
  - Thrombocytopenia [Unknown]
  - Hypokalaemia [Unknown]
  - Headache [Unknown]
  - Vomiting [Unknown]
  - Febrile neutropenia [Unknown]
  - Neuropathy peripheral [Unknown]
  - Nausea [Unknown]
  - Rash [Unknown]
  - Alanine aminotransferase increased [Unknown]
  - Pleural effusion [Unknown]
  - Bacteraemia [Unknown]
  - Neutropenia [Unknown]
  - Infection [Unknown]
  - Diarrhoea [Unknown]
  - Dyspnoea [Unknown]
  - Hyperglycaemia [Unknown]
  - Aspartate aminotransferase increased [Unknown]
  - Fatigue [Unknown]
